FAERS Safety Report 13699494 (Version 1)
Quarter: 2017Q2

REPORT INFORMATION
  Report Type: Report from Study
  Country: US (occurrence: US)
  Receive Date: 20170629
  Receipt Date: 20170629
  Transmission Date: 20170830
  Serious: Yes (Hospitalization)
  Sender: FDA-Public Use
  Company Number: US-BAXTER-2017BAX025740

PATIENT
  Age: 16 Year
  Sex: Male
  Weight: 58.07 kg

DRUGS (30)
  1. CYTARABINE. [Suspect]
     Active Substance: CYTARABINE
     Dosage: COURSE A CYCLE 3 (21 DAYS), OVER 1-30 MIN ON DAYS 4 AND 5 (TOTAL 4 DOSES)
     Route: 042
     Dates: start: 20170406, end: 20170427
  2. METHOTREXATE SODIUM. [Suspect]
     Active Substance: METHOTREXATE SODIUM
     Indication: PRODUCT USED FOR UNKNOWN INDICATION
     Dosage: PROPHASE (CYCLE 5 DAYS), DOSE: 7.5-12 MG ON DAY 1 (AGE BASED DOSING)
     Route: 037
     Dates: start: 20170217, end: 20170221
  3. LEUCOVORIN. [Concomitant]
     Active Substance: LEUCOVORIN
     Dosage: COURSE B CYCLE 2
     Route: 065
     Dates: start: 20170316, end: 20170406
  4. IFOSFAMIDE FOR INJECTION [Suspect]
     Active Substance: IFOSFAMIDE
     Dosage: COURSE A CYCLE 3 (21 DAYS) OVER 60 MIN ON DAYS 1-5
     Route: 042
     Dates: start: 20170406, end: 20170427
  5. CYTARABINE. [Suspect]
     Active Substance: CYTARABINE
     Indication: PRODUCT USED FOR UNKNOWN INDICATION
     Dosage: PROPHASE (CYCLE 5 DAYS), DOSE: 15-24 MG ON DAY 1 (AGE BASED DOSING)
     Route: 037
     Dates: start: 20170217, end: 20170221
  6. CYCLOPHOSPHAMIDE FOR INJECTION, USP [Suspect]
     Active Substance: CYCLOPHOSPHAMIDE
     Indication: PRODUCT USED FOR UNKNOWN INDICATION
     Dosage: PROPHASE (CYCLE 5 DAYS), OVER 15-30 MINUTES ON DAYS 1-2
     Route: 042
     Dates: start: 20170217, end: 20170221
  7. MESNA FOR INJECTION 1 GRAM [Suspect]
     Active Substance: MESNA
     Dosage: COURSE A CYCLE 3
     Route: 065
     Dates: start: 20170406, end: 20170427
  8. CRIZOTINIB [Suspect]
     Active Substance: CRIZOTINIB
     Dosage: COURSE B CYCLE 2 (21 DAYS) ON DAYS 1-21
     Route: 048
     Dates: start: 20170316, end: 20170406
  9. CRIZOTINIB [Suspect]
     Active Substance: CRIZOTINIB
     Dosage: COURSE A CYCLE 3 (21 DAYS) ON DAYS 1-21, TOTAL DOSE OF 5250 MG
     Route: 048
     Dates: start: 20170406, end: 20170427
  10. DEXAMETHASONE. [Suspect]
     Active Substance: DEXAMETHASONE
     Indication: PRODUCT USED FOR UNKNOWN INDICATION
     Dosage: PROPHASE (CYCLE 5 DAYS), ON DAYS 1 AND 2
     Route: 048
     Dates: start: 20170217
  11. MESNA FOR INJECTION 1 GRAM [Suspect]
     Active Substance: MESNA
     Indication: PRODUCT USED FOR UNKNOWN INDICATION
     Dosage: COURSE A CYCLE 1
     Route: 065
     Dates: start: 20170222, end: 20170315
  12. CRIZOTINIB [Suspect]
     Active Substance: CRIZOTINIB
     Indication: PRODUCT USED FOR UNKNOWN INDICATION
     Dosage: COURSE A CYCLE 1(21 DAYS), ON DAYS 1-21
     Route: 048
     Dates: start: 20170222, end: 20170315
  13. METHOTREXATE SODIUM. [Suspect]
     Active Substance: METHOTREXATE SODIUM
     Dosage: COURSE B CYCLE 2 (21 DAYS), OVER 3 HOURS ON DAY1
     Route: 042
     Dates: start: 20170316, end: 20170406
  14. DEXAMETHASONE. [Suspect]
     Active Substance: DEXAMETHASONE
     Dosage: COURSE A CYCLE 1 (21 DAYS), ON DAYS 1-5
     Route: 048
     Dates: start: 20170222, end: 20170315
  15. DEXAMETHASONE. [Suspect]
     Active Substance: DEXAMETHASONE
     Dosage: COURSE B CYCLE 2 (CYCLE 21 DAYS), ON DAYS 1-5
     Route: 048
     Dates: start: 20170316, end: 20170406
  16. DEXAMETHASONE. [Suspect]
     Active Substance: DEXAMETHASONE
     Dosage: COURSE A CYCLE 3 (21 DAYS), ON DAYS 1-5
     Route: 048
     Dates: start: 20170406, end: 20170427
  17. LEUCOVORIN. [Concomitant]
     Active Substance: LEUCOVORIN
     Dosage: COURSE A CYCLE 3
     Route: 065
     Dates: start: 20170406, end: 20170427
  18. CYCLOPHOSPHAMIDE FOR INJECTION, USP [Suspect]
     Active Substance: CYCLOPHOSPHAMIDE
     Dosage: COURSE B CYCLE 2 (21 DAYS) OVER 15-30 MINUTES ON DAYS 1-5
     Route: 042
     Dates: start: 20170316, end: 20170406
  19. IFOSFAMIDE FOR INJECTION [Suspect]
     Active Substance: IFOSFAMIDE
     Indication: PRODUCT USED FOR UNKNOWN INDICATION
     Dosage: COURSE A CYCLE 1 (21 DAYS) OVER 60 MIN ON DAYS 1-5
     Route: 042
     Dates: start: 20170222, end: 20170315
  20. CYTARABINE. [Suspect]
     Active Substance: CYTARABINE
     Dosage: COURSE A CYCLE 1 (21 DAYS), OVER 1-30 MIN ON DAYS 4 AND 5 (TOTAL 4 DOSES)
     Route: 042
     Dates: start: 20170217, end: 20170221
  21. DOXORUBICIN HCL [Suspect]
     Active Substance: DOXORUBICIN HYDROCHLORIDE
     Indication: PRODUCT USED FOR UNKNOWN INDICATION
     Dosage: COURSE B CYCLE 2 (21 DAYS), OVER 1-15 MINUTES ON DAYS 4 AND 5)
     Route: 042
     Dates: start: 20170316, end: 20170406
  22. LEUCOVORIN. [Concomitant]
     Active Substance: LEUCOVORIN
     Indication: PRODUCT USED FOR UNKNOWN INDICATION
     Dosage: COURSE A CYCLE 1
     Route: 065
     Dates: start: 20170222, end: 20170315
  23. CEFEPIME [Concomitant]
     Active Substance: CEFEPIME HYDROCHLORIDE
     Indication: PRODUCT USED FOR UNKNOWN INDICATION
     Route: 065
  24. DEXAMETHASONE. [Suspect]
     Active Substance: DEXAMETHASONE
     Dosage: PROPHASE (CYCLE 5 DAYS) ON DAYS 3-5
     Route: 048
     Dates: end: 20170221
  25. LEVAQUIN [Concomitant]
     Active Substance: LEVOFLOXACIN
     Indication: PRODUCT USED FOR UNKNOWN INDICATION
     Route: 065
  26. HYDROCORTISONE. [Suspect]
     Active Substance: HYDROCORTISONE
     Indication: PRODUCT USED FOR UNKNOWN INDICATION
     Dosage: PROPHASE (CYCLE 5 DAYS), DOSE: 7.5-12 MG ON DAY 1 (AGE BASED DOSING)
     Route: 037
     Dates: start: 20170217, end: 20170221
  27. METHOTREXATE SODIUM. [Suspect]
     Active Substance: METHOTREXATE SODIUM
     Dosage: COURSE A CYCLE 1 (21 DAYS), OVER 3 HOURS ON DAY 1
     Route: 042
     Dates: start: 20170222, end: 20170315
  28. METHOTREXATE SODIUM. [Suspect]
     Active Substance: METHOTREXATE SODIUM
     Dosage: COURSE A CYCLE 3 (21 DAYS), OVER 3 HOURS ON DAY 1
     Route: 042
     Dates: start: 20170406, end: 20170427
  29. VP-16 [Suspect]
     Active Substance: ETOPOSIDE
     Indication: PRODUCT USED FOR UNKNOWN INDICATION
     Dosage: COURSE A CYCLE 1 (21 DAYS) OVER 2 HOURS ON DAYS 4 AND 5
     Route: 042
     Dates: start: 20170222, end: 20170315
  30. VP-16 [Suspect]
     Active Substance: ETOPOSIDE
     Dosage: COURSE A CYCLE 3 (21 DAYS) OVER 2 HOURS ON DAYS 4 AND 5
     Route: 042
     Dates: start: 20170406, end: 20170427

REACTIONS (1)
  - Embolism [Unknown]

NARRATIVE: CASE EVENT DATE: 20170426
